FAERS Safety Report 11341502 (Version 1)
Quarter: 2015Q3

REPORT INFORMATION
  Report Type: Spontaneous
  Country: US (occurrence: US)
  Receive Date: 20150805
  Receipt Date: 20150805
  Transmission Date: 20151125
  Serious: No
  Sender: FDA-Public Use
  Company Number: US-JNJFOC-20150720356

PATIENT
  Age: 86 Year
  Sex: Male

DRUGS (5)
  1. NEXIUM [Concomitant]
     Active Substance: ESOMEPRAZOLE MAGNESIUM
     Route: 048
     Dates: start: 20140312
  2. FLIVAS [Concomitant]
     Active Substance: NAFTOPIDIL
     Route: 048
     Dates: start: 20140115
  3. BUP-4 [Concomitant]
     Active Substance: PROPIVERINE
     Route: 048
     Dates: start: 20140115
  4. ZYTIGA [Suspect]
     Active Substance: ABIRATERONE ACETATE
     Indication: PROSTATE CANCER
     Route: 048
     Dates: start: 20140910, end: 20150107
  5. PREDONINE [Concomitant]
     Active Substance: PREDNISOLONE\PREDNISOLONE ACETATE\PREDNISOLONE SODIUM SUCCINATE
     Indication: PROSTATE CANCER
     Route: 048
     Dates: start: 20140910, end: 20150107

REACTIONS (1)
  - Decreased appetite [Unknown]
